FAERS Safety Report 6714266-6 (Version None)
Quarter: 2010Q2

REPORT INFORMATION
  Report Type: 
  Country: None (occurrence: None)
  Receive Date: 20100506
  Receipt Date: 20090814
  Transmission Date: 20101027
  Serious: No
  Sender: FDA-Public Use
  Company Number: US-BAUSCH-2009BL004223

PATIENT
  Age: 45 Year
  Sex: Female

DRUGS (1)
  1. LOTEMAX [Suspect]
     Indication: DRUG USE FOR UNKNOWN INDICATION
     Route: 047
     Dates: start: 20090813, end: 20090814

REACTIONS (2)
  - EYE IRRITATION [None]
  - FOREIGN BODY SENSATION IN EYES [None]
